FAERS Safety Report 19956547 (Version 1)
Quarter: 2021Q4

REPORT INFORMATION
  Report Type: Spontaneous
  Country: PL (occurrence: PL)
  Receive Date: 20211014
  Receipt Date: 20211014
  Transmission Date: 20220303
  Serious: Yes (Life-Threatening, Hospitalization, Other)
  Sender: FDA-Public Use
  Company Number: PL-ALXN-A202111288

PATIENT
  Age: 71 Year
  Sex: Male

DRUGS (1)
  1. SOLIRIS [Suspect]
     Active Substance: ECULIZUMAB
     Indication: Paroxysmal nocturnal haemoglobinuria
     Dosage: 600 MG, UNK
     Route: 042
     Dates: start: 20211005, end: 20211011

REACTIONS (1)
  - Fungal sepsis [Not Recovered/Not Resolved]

NARRATIVE: CASE EVENT DATE: 20211006
